FAERS Safety Report 14869583 (Version 5)
Quarter: 2018Q2

REPORT INFORMATION
  Report Type: Spontaneous
  Country: CZ (occurrence: CZ)
  Receive Date: 20180509
  Receipt Date: 20180618
  Transmission Date: 20180711
  Serious: Yes (Hospitalization)
  Sender: FDA-Public Use
  Company Number: CZ-JNJFOC-20180502777

PATIENT
  Age: 9 Year
  Sex: Male
  Weight: 26 kg

DRUGS (2)
  1. ZYRTEC [Suspect]
     Active Substance: CETIRIZINE HYDROCHLORIDE
     Indication: SEASONAL ALLERGY
     Dosage: LONG-TERM USE OF ANTIHISTAMINES SEASONALLY IN HAY FEVER. NOW RECENTLY TAKEN ZYRTEC 5MG IN TOTAL
     Route: 048
     Dates: start: 20180410, end: 20180410
  2. ZYRTEC [Suspect]
     Active Substance: CETIRIZINE HYDROCHLORIDE
     Route: 048

REACTIONS (6)
  - Confusional state [Recovered/Resolved]
  - Vomiting [Recovered/Resolved]
  - Vision blurred [Recovered/Resolved]
  - Somnolence [Recovered/Resolved]
  - Retrograde amnesia [Recovered/Resolved]
  - Mydriasis [Recovered/Resolved]

NARRATIVE: CASE EVENT DATE: 20180410
